FAERS Safety Report 4423648-7 (Version None)
Quarter: 2004Q3

REPORT INFORMATION
  Report Type: 
  Country: None (occurrence: None)
  Receive Date: 20040719
  Receipt Date: 20040412
  Transmission Date: 20050211
  Serious: Yes (Hospitalization)
  Sender: FDA-Public Use
  Company Number: A03200401127

PATIENT
  Age: 84 Year
  Sex: Male
  Weight: 65.7716 kg

DRUGS (4)
  1. UROXATRAL [Suspect]
     Indication: MICTURITION DISORDER
     Dosage: 10 MG OD; ORAL
     Route: 048
     Dates: start: 20040313, end: 20040313
  2. ATORVASTATIN [Concomitant]
  3. AMIODARONE HCL [Concomitant]
  4. DILTIAZEM [Concomitant]

REACTIONS (2)
  - HYPOTENSION [None]
  - HYPOTONIC-HYPORESPONSIVE EPISODE [None]
